FAERS Safety Report 7502282-6 (Version None)
Quarter: 2011Q2

REPORT INFORMATION
  Report Type: 
  Country: None (occurrence: None)
  Receive Date: 20110525
  Receipt Date: 20090514
  Transmission Date: 20111010
  Serious: Yes (Other)
  Sender: FDA-Public Use
  Company Number: US-BAYER-200921010NA

PATIENT
  Age: 77 Year
  Sex: Male
  Weight: 93 kg

DRUGS (23)
  1. PROTAMINE SULFATE [Concomitant]
     Route: 042
  2. TYLENOL ALLERGY SINUS [Concomitant]
     Dosage: UNK UNK, PRN
     Route: 048
  3. APROTININ [Concomitant]
     Dosage: UNK
     Dates: start: 20051108, end: 20051108
  4. CENTRUM SILVER [Concomitant]
     Dosage: UNK UNK, QD
     Route: 048
  5. MORPHINE [Concomitant]
     Dosage: 4 MG, UNK
     Route: 042
     Dates: start: 20051108
  6. HEPARIN [Concomitant]
     Dosage: 25000/250CC, 1100 UNITS/HOUR, UNK
     Route: 042
     Dates: start: 20051108
  7. SAW PALMETTO [Concomitant]
     Dosage: 2, UNK
     Route: 048
  8. CITRACAL [Concomitant]
     Route: 048
  9. NITROGLYCERIN [Concomitant]
     Dosage: UNK
     Route: 060
     Dates: start: 20051108
  10. ASPIRIN [Concomitant]
     Dosage: 325 MG, UNK
     Route: 048
  11. PLAVIX [Concomitant]
     Dosage: 300 MG, UNK
     Route: 048
     Dates: start: 20051108
  12. ZOFRAN [Concomitant]
     Dosage: 4 MG, UNK
     Route: 042
     Dates: start: 20051108
  13. HEPARIN [Concomitant]
     Dosage: 10000 U, UNK
     Route: 042
     Dates: start: 20051108, end: 20051108
  14. VERSED [Concomitant]
     Dosage: 8 ML, UNK
     Route: 042
     Dates: start: 20051108
  15. MANNITOL [Concomitant]
     Dosage: 12.5 GM, UNK
     Route: 042
     Dates: start: 20051108
  16. TRASYLOL [Suspect]
     Indication: CORONARY ARTERY BYPASS
     Dosage: 2 MILLION KIU PUMP PRIME DOSE, UNK
     Route: 042
     Dates: start: 20051108, end: 20051108
  17. GUAIFENESIN [Concomitant]
     Dosage: UNK UNK, PRN
     Route: 048
  18. HEPARIN [Concomitant]
     Dosage: 5000 U, UNK
     Route: 042
     Dates: start: 20051108
  19. INTEGRILIN [Concomitant]
     Dosage: 1 MCG/KG, UNK
     Route: 042
     Dates: start: 20051108
  20. INTEGRILIN [Concomitant]
     Dosage: 180 MCG/KG, UNK
     Route: 042
     Dates: start: 20051108
  21. BICARBONAT [Concomitant]
     Dosage: 35 MG, UNK
     Route: 042
     Dates: start: 20051108
  22. ALBUMIN (HUMAN) [Concomitant]
     Dosage: 12.5 GM, UNK
     Route: 042
     Dates: start: 20051108
  23. EPINEPHRINE [Concomitant]
     Route: 042

REACTIONS (11)
  - RENAL INJURY [None]
  - EMOTIONAL DISTRESS [None]
  - RENAL FAILURE [None]
  - PAIN [None]
  - ANXIETY [None]
  - INJURY [None]
  - RENAL IMPAIRMENT [None]
  - STRESS [None]
  - FEAR [None]
  - ANHEDONIA [None]
  - UNEVALUABLE EVENT [None]
